FAERS Safety Report 15740729 (Version 1)
Quarter: 2018Q4

REPORT INFORMATION
  Report Type: Spontaneous
  Country: FR (occurrence: FR)
  Receive Date: 20181219
  Receipt Date: 20181219
  Transmission Date: 20190205
  Serious: Yes (Other)
  Sender: FDA-Public Use
  Company Number: FR-PFIZER INC-2018513179

PATIENT
  Age: 83 Year
  Sex: Female
  Weight: 54 kg

DRUGS (2)
  1. MODOPAR [Suspect]
     Active Substance: BENSERAZIDE HYDROCHLORIDE\LEVODOPA
     Indication: EXTRAPYRAMIDAL DISORDER
     Dosage: UNK
     Route: 048
     Dates: start: 201710, end: 20181014
  2. VENLAFAXINE HCL [Suspect]
     Active Substance: VENLAFAXINE HYDROCHLORIDE
     Indication: DEPRESSION
     Dosage: UNK
     Route: 048
     Dates: end: 201701

REACTIONS (3)
  - Extrapyramidal disorder [Not Recovered/Not Resolved]
  - Dystonia [Not Recovered/Not Resolved]
  - Pyramidal tract syndrome [Not Recovered/Not Resolved]

NARRATIVE: CASE EVENT DATE: 201701
